FAERS Safety Report 16523114 (Version 2)
Quarter: 2019Q3

REPORT INFORMATION
  Report Type: Report from Study
  Country: None (occurrence: RO)
  Receive Date: 20190702
  Receipt Date: 20190702
  Transmission Date: 20191004
  Serious: Yes (Hospitalization, Other)
  Sender: FDA-Public Use
  Company Number: RO-ABBVIE-19K-135-2837807-00

PATIENT
  Age: 61 Year
  Sex: Female

DRUGS (9)
  1. ISONIAZID. [Suspect]
     Active Substance: ISONIAZID
     Indication: INTERFERON GAMMA RELEASE ASSAY POSITIVE
     Route: 048
     Dates: start: 201802, end: 201810
  2. TERTENSIF [Concomitant]
     Active Substance: INDAPAMIDE
     Indication: BLOOD PRESSURE FLUCTUATION
     Dosage: BEFORE ABBVIE THERAPY
     Route: 048
  3. BONVIVA [Concomitant]
     Active Substance: IBANDRONATE SODIUM
     Indication: OSTEOPOROSIS
     Dosage: STOP DATE TEXT: AFTER 6 MONTHS
     Route: 048
     Dates: start: 2011
  4. AUGMENTIN [Suspect]
     Active Substance: AMOXICILLIN\CLAVULANATE POTASSIUM
     Indication: RESPIRATORY TRACT INFECTION
     Route: 048
     Dates: start: 2019, end: 2019
  5. METOPROLOL. [Concomitant]
     Active Substance: METOPROLOL
     Indication: BLOOD PRESSURE FLUCTUATION
     Dosage: BEFORE ABBVIE THERAPY
     Route: 048
  6. HUMIRA [Suspect]
     Active Substance: ADALIMUMAB
     Indication: RHEUMATOID ARTHRITIS
     Route: 058
     Dates: start: 20170521, end: 201905
  7. DICLOREUM [Concomitant]
     Active Substance: DICLOFENAC SODIUM
     Indication: RHEUMATOID ARTHRITIS
     Dosage: BEFORE ABBVIE THERAPY
     Route: 048
  8. ENALAPRIL [Concomitant]
     Active Substance: ENALAPRIL
     Indication: BLOOD PRESSURE FLUCTUATION
     Route: 048
  9. LEFLUNOMIDE. [Concomitant]
     Active Substance: LEFLUNOMIDE
     Indication: RHEUMATOID ARTHRITIS
     Dosage: BEFORE ABBVIE THERAPY
     Route: 048

REACTIONS (11)
  - Nausea [Recovered/Resolved]
  - Dehydration [Recovered/Resolved]
  - Arthralgia [Not Recovered/Not Resolved]
  - Musculoskeletal pain [Recovering/Resolving]
  - Hip arthroplasty [Not Recovered/Not Resolved]
  - Respiratory tract infection [Recovered/Resolved]
  - Blood pressure decreased [Recovered/Resolved]
  - Diarrhoea [Recovered/Resolved]
  - Interferon gamma release assay positive [Not Recovered/Not Resolved]
  - Pain in extremity [Recovering/Resolving]
  - Hepatitis B surface antibody positive [Not Recovered/Not Resolved]

NARRATIVE: CASE EVENT DATE: 2017
